FAERS Safety Report 4851873-X (Version None)
Quarter: 2005Q4

REPORT INFORMATION
  Report Type: 
  Country: None (occurrence: None)
  Receive Date: 20051125
  Receipt Date: 20050228
  Transmission Date: 20060501
  Serious: Yes (Congenital Anomaly)
  Sender: FDA-Public Use
  Company Number: 2005038223

PATIENT
  Age: 71 Year
  Sex: Male
  Weight: 130.6359 kg

DRUGS (13)
  1. TIKOSYN [Suspect]
     Indication: ATRIAL FIBRILLATION
     Dosage: 1000 MCG (500 MCG, 2 IN 1 D), ORAL
     Route: 048
     Dates: start: 20050223
  2. CARVEDILOL [Concomitant]
  3. POTASSIUM CHLORIDE [Concomitant]
  4. ISOSORBIDE MONONITRATE [Concomitant]
  5. FUROSEMIDE [Concomitant]
  6. GLIBENCLAMIDE [Concomitant]
  7. SPIRONOLACTONE [Concomitant]
  8. IRON [Concomitant]
  9. WARFARIN SODIUM [Concomitant]
  10. WELLNESS FORMULA (HERBAL NOS, MINERALS NOS, VITAMINS NOS) [Concomitant]
  11. POLYCARBOPHIL CALCIUM [Concomitant]
  12. LISINOPRIL [Concomitant]
  13. SIMVASTATIN [Concomitant]

REACTIONS (4)
  - BRADYARRHYTHMIA [None]
  - DYSPNOEA [None]
  - NECK PAIN [None]
  - SHOULDER PAIN [None]
